FAERS Safety Report 18863347 (Version 1)
Quarter: 2021Q1

REPORT INFORMATION
  Report Type: Spontaneous
  Country: DE (occurrence: DE)
  Receive Date: 20210209
  Receipt Date: 20210209
  Transmission Date: 20210420
  Serious: No
  Sender: FDA-Public Use
  Company Number: DE-JNJFOC-20210128346

PATIENT
  Sex: Female

DRUGS (8)
  1. DUROGESIC SMAT [Suspect]
     Active Substance: FENTANYL
     Indication: PRODUCT USED FOR UNKNOWN INDICATION
     Dosage: UNKNOWN
     Route: 062
  2. DUROGESIC SMAT [Suspect]
     Active Substance: FENTANYL
  3. DUROGESIC SMAT [Suspect]
     Active Substance: FENTANYL
  4. DUROGESIC SMAT [Suspect]
     Active Substance: FENTANYL
  5. DUROGESIC SMAT [Suspect]
     Active Substance: FENTANYL
     Indication: PRODUCT USED FOR UNKNOWN INDICATION
     Dosage: UNK (1 A PHARMA S 12 UG/H MATRIXPFLASTER )
     Route: 062
  6. DUROGESIC SMAT [Suspect]
     Active Substance: FENTANYL
  7. DUROGESIC SMAT [Suspect]
     Active Substance: FENTANYL
  8. DUROGESIC SMAT [Suspect]
     Active Substance: FENTANYL

REACTIONS (2)
  - Erythema [Unknown]
  - Product adhesion issue [Unknown]
